FAERS Safety Report 10019129 (Version 1)
Quarter: 2014Q1

REPORT INFORMATION
  Report Type: Spontaneous
  Country: AU (occurrence: None)
  Receive Date: 20140314
  Receipt Date: 20140314
  Transmission Date: 20141002
  Serious: Yes (Other)
  Sender: FDA-Public Use
  Company Number: None

PATIENT
  Age: 78 Year
  Sex: Female
  Weight: 75 kg

DRUGS (1)
  1. MULTIHANCE [Suspect]
     Indication: SCAN WITH CONTRAST
     Dosage: 10 MLS  1 DOSE AT 1.5 ML/S  INTRAVENOUS
     Route: 042
     Dates: start: 20140313, end: 20140313

REACTIONS (3)
  - Rash [None]
  - Injection site mass [None]
  - Injection site erythema [None]
